FAERS Safety Report 5355528-7 (Version None)
Quarter: 2007Q2

REPORT INFORMATION
  Report Type: 
  Country: None (occurrence: None)
  Receive Date: 20070530
  Receipt Date: 20061207
  Transmission Date: 20071010
  Serious: Yes (Hospitalization)
  Sender: FDA-Public Use
  Company Number: US200609001764

PATIENT
  Age: 46 Year
  Sex: Male
  Weight: 98.9 kg

DRUGS (2)
  1. ZYPREXA [Suspect]
     Dates: start: 19970101, end: 19980101
  2. FLUOXETINE [Concomitant]

REACTIONS (2)
  - DIABETES MELLITUS [None]
  - METABOLIC DISORDER [None]
